FAERS Safety Report 7201574-8 (Version None)
Quarter: 2010Q4

REPORT INFORMATION
  Report Type: 
  Country: None (occurrence: None)
  Receive Date: 20101229
  Receipt Date: 20101108
  Transmission Date: 20110411
  Serious: No
  Sender: FDA-Public Use
  Company Number: US-MYLANLABS-2010S1020322

PATIENT
  Age: 48 Year
  Sex: Male

DRUGS (8)
  1. RISPERIDONE [Suspect]
     Indication: PSYCHOTIC DISORDER
     Dosage: SPLITS A 1MG TABLET IN 1/2 AND TAKES 0.5MG QD
     Route: 048
     Dates: end: 20100101
  2. RISPERIDONE [Suspect]
     Route: 048
     Dates: start: 20100101
  3. BUSPIRONE [Concomitant]
  4. LITHIUM [Concomitant]
  5. CLONAZEPAM [Concomitant]
  6. LAMOTRIGINE [Concomitant]
  7. EFFEXOR [Concomitant]
  8. AMLODIPINE [Concomitant]

REACTIONS (2)
  - MUSCLE FATIGUE [None]
  - MUSCULAR WEAKNESS [None]
